FAERS Safety Report 6415033-3 (Version None)
Quarter: 2009Q4

REPORT INFORMATION
  Report Type: 
  Country: None (occurrence: None)
  Receive Date: 20091026
  Receipt Date: 20090901
  Transmission Date: 20100525
  Serious: No
  Sender: FDA-Public Use
  Company Number: US-ABBOTT-09P-163-0595044-00

PATIENT
  Sex: Female
  Weight: 85.352 kg

DRUGS (4)
  1. LUPRON DEPOT [Suspect]
     Indication: MENOPAUSE DELAYED
     Route: 030
     Dates: start: 20090316
  2. AROMASIN [Concomitant]
     Indication: DRUG USE FOR UNKNOWN INDICATION
  3. ALEVE [Concomitant]
     Indication: DRUG USE FOR UNKNOWN INDICATION
  4. ZOMETA [Concomitant]
     Indication: BREAST CANCER
     Route: 042

REACTIONS (1)
  - HAEMORRHAGE [None]
